FAERS Safety Report 7061834-0 (Version None)
Quarter: 2010Q4

REPORT INFORMATION
  Report Type: 
  Country: None (occurrence: None)
  Receive Date: 20101026
  Receipt Date: 20101018
  Transmission Date: 20110411
  Serious: Yes (Other)
  Sender: FDA-Public Use
  Company Number: BR-ROCHE-735526

PATIENT
  Sex: Female
  Weight: 68 kg

DRUGS (8)
  1. TOCILIZUMAB [Suspect]
     Indication: RHEUMATOID ARTHRITIS
     Route: 042
     Dates: start: 20100503
  2. TRIAXONE [Concomitant]
     Dosage: DRUG REPORTED AS TRIAXIN
  3. OMEPRAZOLE [Concomitant]
  4. PREDSIM [Concomitant]
  5. METHOTREXATE [Concomitant]
  6. FOLIC ACID [Concomitant]
  7. ENALAPRIL MALEATE [Concomitant]
     Indication: BLOOD PRESSURE ABNORMAL
  8. NIMESULIDE [Concomitant]
     Indication: PAIN
     Dosage: FREQUENCY: 1 TABLET, WHEN NECESSARY

REACTIONS (3)
  - DRUG INEFFECTIVE [None]
  - HYPERTENSION [None]
  - WEIGHT INCREASED [None]
